FAERS Safety Report 20342894 (Version 1)
Quarter: 2022Q1

REPORT INFORMATION
  Report Type: Spontaneous
  Country: CZ (occurrence: CZ)
  Receive Date: 20220117
  Receipt Date: 20220117
  Transmission Date: 20220423
  Serious: Yes (Other)
  Sender: FDA-Public Use
  Company Number: CZ-OCTA-GAM00819CZ

PATIENT
  Age: 38 Year
  Sex: Female

DRUGS (1)
  1. HUMAN IMMUNOGLOBULIN G [Suspect]
     Active Substance: HUMAN IMMUNOGLOBULIN G
     Indication: Neonatal alloimmune thrombocytopenia
     Dosage: 1000 MILLIGRAM/KILOGRAM, 1/WEEK
     Route: 042

REACTIONS (3)
  - Foetal death [Unknown]
  - Exposure during pregnancy [Unknown]
  - Off label use [Unknown]
